FAERS Safety Report 22021164 (Version 2)
Quarter: 2023Q1

REPORT INFORMATION
  Report Type: Spontaneous
  Country: US (occurrence: US)
  Receive Date: 20230222
  Receipt Date: 20230228
  Transmission Date: 20230417
  Serious: No
  Sender: FDA-Public Use
  Company Number: US-SA-SAC20230221001425

PATIENT
  Age: 38 Year
  Sex: Female

DRUGS (6)
  1. AUBAGIO [Suspect]
     Active Substance: TERIFLUNOMIDE
     Indication: Multiple sclerosis
     Dosage: 14 MG, QD
     Route: 048
     Dates: start: 20200703, end: 20220218
  2. MAGNESIUM [Concomitant]
     Active Substance: MAGNESIUM
     Dosage: UNK
  3. LYSINE [Concomitant]
     Active Substance: LYSINE
     Dosage: UNK
  4. PROGESTERONE [Concomitant]
     Active Substance: PROGESTERONE
     Dosage: UNK
  5. VITAMIN B COMPLEX WITH VITAMIN C [ASCORBIC ACID;VITAMIN B COMPLEX] [Concomitant]
     Dosage: UNK
  6. MONO LINYAH [Concomitant]
     Dosage: UNK

REACTIONS (10)
  - COVID-19 [Unknown]
  - Pruritus [Unknown]
  - Dry skin [Unknown]
  - Dyspepsia [Unknown]
  - Sunburn [Recovered/Resolved]
  - Norovirus infection [Unknown]
  - Diarrhoea [Unknown]
  - Herpes simplex [Unknown]
  - White blood cell count decreased [Recovered/Resolved]
  - Influenza [Unknown]

NARRATIVE: CASE EVENT DATE: 20200701
